FAERS Safety Report 14501938 (Version 5)
Quarter: 2018Q2

REPORT INFORMATION
  Report Type: Spontaneous
  Country: PT (occurrence: PT)
  Receive Date: 20180208
  Receipt Date: 20180511
  Transmission Date: 20180711
  Serious: Yes (Death, Other)
  Sender: FDA-Public Use
  Company Number: PT-009507513-1802PRT002798

PATIENT
  Age: 14 Year
  Sex: Female

DRUGS (6)
  1. IBUPROFEN. [Concomitant]
     Active Substance: IBUPROFEN
     Indication: NASOPHARYNGITIS
     Dosage: UNK
     Dates: start: 20180127
  2. NASEX [Concomitant]
     Indication: NASOPHARYNGITIS
     Dosage: UNK
     Dates: start: 20180127
  3. LEVOTUSS [Concomitant]
     Active Substance: LEVODROPROPIZINE
     Indication: NASOPHARYNGITIS
     Dosage: UNK
     Dates: start: 20180127
  4. AERIUS [Suspect]
     Active Substance: DESLORATADINE
     Indication: NASOPHARYNGITIS
     Dosage: UNK
     Dates: start: 20180128
  5. DOMPERIDONE [Suspect]
     Active Substance: DOMPERIDONE
     Dosage: UNK
     Dates: start: 20180128
  6. BEN-U-RON [Concomitant]
     Indication: NASOPHARYNGITIS
     Dosage: UNK
     Dates: start: 20180127

REACTIONS (1)
  - Death [Fatal]

NARRATIVE: CASE EVENT DATE: 20180129
